FAERS Safety Report 6625049-X (Version None)
Quarter: 2010Q1

REPORT INFORMATION
  Report Type: 
  Country: None (occurrence: None)
  Receive Date: 20100310
  Receipt Date: 20090922
  Transmission Date: 20100710
  Serious: No
  Sender: FDA-Public Use
  Company Number: US-BIOGENIDEC-2009BI030751

PATIENT
  Sex: Female

DRUGS (1)
  1. AVONEX [Suspect]
     Indication: MULTIPLE SCLEROSIS
     Route: 030
     Dates: start: 19971001

REACTIONS (9)
  - ANXIETY [None]
  - DYSGRAPHIA [None]
  - FEAR [None]
  - GAIT DISTURBANCE [None]
  - GENERAL SYMPTOM [None]
  - INJECTION SITE ERYTHEMA [None]
  - POSTURE ABNORMAL [None]
  - SPEECH DISORDER [None]
  - VISUAL IMPAIRMENT [None]
